FAERS Safety Report 9539547 (Version 1)
Quarter: 2013Q2

REPORT INFORMATION
  Report Type: Spontaneous
  Country: US (occurrence: None)
  Receive Date: 20130515
  Receipt Date: 20130515
  Transmission Date: 20140414
  Serious: Yes (Hospitalization)
  Sender: FDA-Public Use
  Company Number: 2012SP019120

PATIENT
  Sex: Female

DRUGS (4)
  1. ZEMURON [Suspect]
     Indication: INDUCTION OF ANAESTHESIA
  2. ZEMURON [Suspect]
     Indication: SURGERY
  3. PROPOFOL [Suspect]
     Indication: PRODUCT USED FOR UNKNOWN INDICATION
  4. FENTANYL [Suspect]
     Indication: PRODUCT USED FOR UNKNOWN INDICATION

REACTIONS (2)
  - Anaphylactic reaction [None]
  - Throat tightness [None]
